FAERS Safety Report 8591180-5 (Version None)
Quarter: 2012Q3

REPORT INFORMATION
  Report Type: 
  Country: None (occurrence: None)
  Receive Date: 20120813
  Receipt Date: 20120803
  Transmission Date: 20120928
  Serious: Yes (Hospitalization, Other)
  Sender: FDA-Public Use
  Company Number: BR-ABBOTT-12P-020-0949959-00

PATIENT
  Sex: Female
  Weight: 72 kg

DRUGS (8)
  1. DEPAKENE [Suspect]
     Indication: EPILEPSY
     Route: 048
     Dates: end: 19980101
  2. LAMOTRIGINE [Concomitant]
     Indication: PRODUCT USED FOR UNKNOWN INDICATION
  3. PHENOBARBITAL TAB [Concomitant]
     Indication: PRODUCT USED FOR UNKNOWN INDICATION
  4. ATENOLOL [Concomitant]
     Indication: PRODUCT USED FOR UNKNOWN INDICATION
  5. DEPAKENE [Suspect]
     Route: 048
     Dates: start: 19980101
  6. CLONAZEPAM [Concomitant]
     Indication: PRODUCT USED FOR UNKNOWN INDICATION
     Dosage: EVENTUALLY
  7. DEPAKENE [Suspect]
     Dates: start: 20090101
  8. DEPAKENE [Suspect]

REACTIONS (16)
  - THYROID NEOPLASM [None]
  - EYE PAIN [None]
  - DENGUE FEVER [None]
  - PNEUMONIA [None]
  - MONOCYTOSIS [None]
  - LYMPHOCYTOSIS [None]
  - POST PROCEDURAL HAEMORRHAGE [None]
  - NECK MASS [None]
  - OVARIAN CYST [None]
  - PAIN [None]
  - RASH MACULAR [None]
  - OEDEMA PERIPHERAL [None]
  - PYREXIA [None]
  - UNEVALUABLE EVENT [None]
  - LEUKOPENIA [None]
  - GENERALISED ERYTHEMA [None]
